APPROVED DRUG PRODUCT: PACLITAXEL
Active Ingredient: PACLITAXEL
Strength: 6MG/ML
Dosage Form/Route: INJECTABLE;INJECTION
Application: A077413 | Product #001
Applicant: PLIVA LACHEMA AS
Approved: Mar 12, 2008 | RLD: No | RS: No | Type: DISCN